FAERS Safety Report 6637040-8 (Version None)
Quarter: 2010Q1

REPORT INFORMATION
  Report Type: 
  Country: None (occurrence: None)
  Receive Date: 20100316
  Receipt Date: 20100309
  Transmission Date: 20100710
  Serious: Yes (Hospitalization)
  Sender: FDA-Public Use
  Company Number: US-WYE-H13985310

PATIENT
  Sex: Male
  Weight: 59.5 kg

DRUGS (1)
  1. TACROLIMUS, TEST ARTICLE IN SIROLIMUS STUDY [Suspect]
     Indication: PROPHYLAXIS AGAINST TRANSPLANT REJECTION
     Route: 048

REACTIONS (2)
  - CONSTIPATION [None]
  - THERAPEUTIC AGENT TOXICITY [None]
